FAERS Safety Report 5871825-0 (Version None)
Quarter: 2008Q3

REPORT INFORMATION
  Report Type: 
  Country: None (occurrence: None)
  Receive Date: 20080905
  Receipt Date: 20080903
  Transmission Date: 20090109
  Serious: Yes (Other)
  Sender: FDA-Public Use
  Company Number: BR-BOEHRINGER INGELHEIM GMBH, GERMANY-2008-DE-05209GD

PATIENT
  Sex: Female

DRUGS (2)
  1. CLONIDINE [Suspect]
     Indication: LABOUR PAIN
     Route: 008
  2. ROPIVACAINE [Suspect]
     Indication: LABOUR PAIN
     Dosage: 9.375 MG (IN CASES WHERE NO SECOND DOSE WAS DEMANDED BY THE PATIENT)
     Route: 008

REACTIONS (1)
  - HYPOTENSION [None]
